FAERS Safety Report 26052521 (Version 2)
Quarter: 2025Q4

REPORT INFORMATION
  Report Type: Spontaneous
  Country: JP (occurrence: JP)
  Receive Date: 20251117
  Receipt Date: 20251205
  Transmission Date: 20260118
  Serious: Yes (Death, Hospitalization)
  Sender: RIGEL PHARMACEUTICALS
  Company Number: JP-KISSEI-TL20250889

PATIENT
  Age: 79 Year
  Sex: Female

DRUGS (2)
  1. TAVALISSE [Suspect]
     Active Substance: FOSTAMATINIB
     Indication: Product used for unknown indication
     Dosage: UNK
     Route: 048
     Dates: start: 20250518, end: 20251124
  2. TAVALISSE [Suspect]
     Active Substance: FOSTAMATINIB
     Indication: Immune thrombocytopenia

REACTIONS (6)
  - Death [Fatal]
  - Compression fracture [Unknown]
  - Blood creatine phosphokinase increased [Unknown]
  - Psychiatric symptom [Unknown]
  - Hyperkalaemia [Unknown]
  - Hepatic function abnormal [Unknown]
